FAERS Safety Report 9848552 (Version 2)
Quarter: 2014Q1

REPORT INFORMATION
  Report Type: Spontaneous
  Country: US (occurrence: US)
  Receive Date: 20140128
  Receipt Date: 20140128
  Transmission Date: 20141002
  Serious: Yes (Other)
  Sender: FDA-Public Use
  Company Number: US-GE HEALTHCARE MEDICAL DIAGNOSTICS-OSCN-PR-0806S-0369

PATIENT
  Age: 40 Year
  Sex: Female
  Weight: 70.75 kg

DRUGS (5)
  1. OMNISCAN [Suspect]
     Indication: RENAL FAILURE CHRONIC
     Route: 042
     Dates: start: 20040811, end: 20040811
  2. OMNISCAN [Suspect]
     Indication: SEPSIS
     Route: 042
     Dates: start: 20050523, end: 20050523
  3. OMNISCAN [Suspect]
     Indication: ARTERIOVENOUS FISTULA THROMBOSIS
     Route: 042
     Dates: start: 20060524, end: 20060524
  4. OMNISCAN [Suspect]
     Indication: RENAL OSTEODYSTROPHY
     Route: 042
     Dates: start: 20040316, end: 20040316
  5. OMNISCAN [Suspect]
     Indication: PRODUCT USED FOR UNKNOWN INDICATION

REACTIONS (1)
  - Nephrogenic systemic fibrosis [Not Recovered/Not Resolved]
